FAERS Safety Report 20896302 (Version 1)
Quarter: 2022Q2

REPORT INFORMATION
  Report Type: Spontaneous
  Country: SA (occurrence: SA)
  Receive Date: 20220531
  Receipt Date: 20220531
  Transmission Date: 20220720
  Serious: Yes (Death, Other)
  Sender: FDA-Public Use
  Company Number: SA-AMGEN-SAUSP2022091115

PATIENT

DRUGS (2)
  1. BLINATUMOMAB [Suspect]
     Active Substance: BLINATUMOMAB
     Indication: B precursor type acute leukaemia
     Route: 065
  2. BLINATUMOMAB [Suspect]
     Active Substance: BLINATUMOMAB
     Indication: Acute lymphocytic leukaemia recurrent

REACTIONS (15)
  - Leukodystrophy [Unknown]
  - Neurotoxicity [Unknown]
  - Seizure [Unknown]
  - Cytokine release syndrome [Unknown]
  - Sepsis [Unknown]
  - Minimal residual disease [Unknown]
  - Death [Fatal]
  - Acute lymphocytic leukaemia [Fatal]
  - Transplantation complication [Fatal]
  - Adverse event [Unknown]
  - Therapy non-responder [Unknown]
  - Pyrexia [Unknown]
  - Headache [Unknown]
  - Antibody test negative [Unknown]
  - Blood immunoglobulin G decreased [Unknown]
